FAERS Safety Report 9783532 (Version 1)
Quarter: 2013Q4

REPORT INFORMATION
  Report Type: Spontaneous
  Country: US (occurrence: None)
  Receive Date: 20131223
  Receipt Date: 20131223
  Transmission Date: 20140711
  Serious: Yes (Other)
  Sender: FDA-Public Use
  Company Number: AEGR000218

PATIENT
  Age: 62 Year
  Sex: Male
  Weight: 86.2 kg

DRUGS (6)
  1. JUXTAPID [Suspect]
     Dosage: 10MG, QHS ORAL
     Route: 048
     Dates: start: 20130719, end: 2013
  2. DIOVAN (VALSARTAN) [Concomitant]
  3. OMEPRAZOLE (OMEPRAZOLE) [Concomitant]
  4. CYMBALTA (DULOXETINE HYDROCHLORIDE) [Concomitant]
  5. IBUPROFEN (IBUPROFEN) [Concomitant]
  6. ASPIRIN (ACETYLSALICYLIC ACID) [Concomitant]

REACTIONS (6)
  - Hepatomegaly [None]
  - Aspartate aminotransferase increased [None]
  - Alanine aminotransferase increased [None]
  - Liver disorder [None]
  - Chromaturia [None]
  - Off label use [None]
